FAERS Safety Report 25268409 (Version 1)
Quarter: 2025Q2

REPORT INFORMATION
  Report Type: Spontaneous
  Country: US (occurrence: None)
  Receive Date: 20250503
  Receipt Date: 20250503
  Transmission Date: 20250716
  Serious: Yes (Hospitalization)
  Sender: FDA-CTU
  Company Number: None

PATIENT
  Age: 72 Year
  Sex: Female

DRUGS (8)
  1. ASTAGRAF XL [Suspect]
     Active Substance: TACROLIMUS
     Indication: Renal transplant
     Dates: start: 20180810
  2. ASTAGRAF XL [Concomitant]
     Active Substance: TACROLIMUS
  3. LISINOPRIL TAB 2.5MG [Concomitant]
  4. LISINOPRIL [Concomitant]
     Active Substance: LISINOPRIL
  5. MYCOPHENOLIC ACID [Concomitant]
     Active Substance: MYCOPHENOLIC ACID
  6. MYFORTIC [Concomitant]
     Active Substance: MYCOPHENOLATE SODIUM
  7. PREDNISONE [Concomitant]
     Active Substance: PREDNISONE
  8. SODIUM BICAR TAB 650MG [Concomitant]

REACTIONS (3)
  - Femur fracture [None]
  - Dialysis [None]
  - Stress [None]

NARRATIVE: CASE EVENT DATE: 20250329
